FAERS Safety Report 24304944 (Version 1)
Quarter: 2024Q3

REPORT INFORMATION
  Report Type: Spontaneous
  Country: GB (occurrence: GB)
  Receive Date: 20240911
  Receipt Date: 20240911
  Transmission Date: 20241016
  Serious: Yes (Other)
  Sender: Haleon PLC
  Company Number: GB-MHRA-TPP62272170C8635341YC1725769975222

PATIENT
  Age: 29 Year
  Sex: Male

DRUGS (1)
  1. ANADIN EXTRA [Suspect]
     Active Substance: ACETAMINOPHEN\ASPIRIN\CAFFEINE
     Indication: Ill-defined disorder
     Dates: start: 20240908

REACTIONS (3)
  - Acute respiratory distress syndrome [Recovered/Resolved]
  - Dyspnoea [Unknown]
  - Hypersensitivity [Unknown]
